FAERS Safety Report 12310817 (Version 4)
Quarter: 2016Q3

REPORT INFORMATION
  Report Type: Spontaneous
  Country: IE (occurrence: IE)
  Receive Date: 20160427
  Receipt Date: 20160923
  Transmission Date: 20161109
  Serious: Yes (Death, Other)
  Sender: FDA-Public Use
  Company Number: PHFR2016IE003609

PATIENT
  Age: 6 Month
  Sex: Male
  Weight: 6 kg

DRUGS (5)
  1. EVEROLIMUS [Suspect]
     Active Substance: EVEROLIMUS
     Indication: HYPERTROPHIC CARDIOMYOPATHY
  2. PROPANOLOL [Suspect]
     Active Substance: PROPRANOLOL HYDROCHLORIDE
     Indication: HYPERTROPHIC CARDIOMYOPATHY
     Dosage: UNK
     Route: 048
     Dates: start: 201509
  3. EVEROLIMUS [Suspect]
     Active Substance: EVEROLIMUS
     Indication: MULTIPLE LENTIGINES SYNDROME
  4. DISOPYRAMIDE [Suspect]
     Active Substance: DISOPYRAMIDE
     Indication: LEFT VENTRICLE OUTFLOW TRACT OBSTRUCTION
     Dosage: UNK
     Route: 048
     Dates: start: 201602
  5. EVEROLIMUS [Suspect]
     Active Substance: EVEROLIMUS
     Indication: HEART TRANSPLANT
     Dosage: UNK UNK, QD
     Route: 048
     Dates: start: 201512

REACTIONS (4)
  - Cardiac output decreased [Fatal]
  - Product use issue [Unknown]
  - Bradycardia [Fatal]
  - Respiratory tract infection viral [Recovering/Resolving]

NARRATIVE: CASE EVENT DATE: 20160413
